FAERS Safety Report 17652812 (Version 3)
Quarter: 2020Q2

REPORT INFORMATION
  Report Type: Report from Study
  Country: US (occurrence: US)
  Receive Date: 20200409
  Receipt Date: 20200608
  Transmission Date: 20200713
  Serious: Yes (Other)
  Sender: FDA-Public Use
  Company Number: NVSC2020US096564

PATIENT
  Sex: Female

DRUGS (2)
  1. PIQRAY [Suspect]
     Active Substance: ALPELISIB
     Indication: PRODUCT USED FOR UNKNOWN INDICATION
     Dosage: UNK
     Route: 048
  2. PIQRAY [Suspect]
     Active Substance: ALPELISIB
     Dosage: UNK
     Route: 048

REACTIONS (13)
  - Dry skin [Unknown]
  - Flatulence [Unknown]
  - Lip blister [Recovering/Resolving]
  - Oral mucosal blistering [Recovering/Resolving]
  - Taste disorder [Unknown]
  - Oral pustule [Unknown]
  - Fatigue [Unknown]
  - Abdominal discomfort [Unknown]
  - Constipation [Unknown]
  - Stomatitis [Unknown]
  - Diabetes mellitus [Unknown]
  - Amnesia [Unknown]
  - Nausea [Unknown]
